FAERS Safety Report 7273669-4 (Version None)
Quarter: 2011Q1

REPORT INFORMATION
  Report Type: 
  Country: None (occurrence: None)
  Receive Date: 20110203
  Receipt Date: 20110127
  Transmission Date: 20110831
  Serious: Yes (Other)
  Sender: FDA-Public Use
  Company Number: GB-GILEAD-2011-0035931

PATIENT
  Sex: Male

DRUGS (3)
  1. IVABRADINE [Concomitant]
  2. NICORANDIL [Concomitant]
  3. RANEXA [Suspect]
     Indication: PRODUCT USED FOR UNKNOWN INDICATION
     Route: 048

REACTIONS (2)
  - SYNCOPE [None]
  - CIRCULATORY COLLAPSE [None]
